FAERS Safety Report 9639929 (Version 1)
Quarter: 2013Q4

REPORT INFORMATION
  Report Type: Spontaneous
  Country: US (occurrence: US)
  Receive Date: 20131023
  Receipt Date: 20131023
  Transmission Date: 20140711
  Serious: No
  Sender: FDA-Public Use
  Company Number: US-MYLANLABS-2013S1015797

PATIENT
  Age: 73 Year
  Sex: Female
  Weight: 49.9 kg

DRUGS (4)
  1. CARVEDILOL [Suspect]
     Indication: BLOOD PRESSURE INCREASED
     Route: 048
     Dates: start: 201301
  2. LISINOPRIL [Concomitant]
     Indication: BLOOD PRESSURE INCREASED
  3. UNITHROID [Concomitant]
     Indication: HYPOTHYROIDISM
  4. PREMARIN [Concomitant]

REACTIONS (1)
  - Urticaria [Not Recovered/Not Resolved]
